FAERS Safety Report 17437161 (Version 2)
Quarter: 2020Q1

REPORT INFORMATION
  Report Type: Spontaneous
  Country: CZ (occurrence: CZ)
  Receive Date: 20200219
  Receipt Date: 20200228
  Transmission Date: 20200409
  Serious: Yes (Death, Life-Threatening, Hospitalization, Other)
  Sender: FDA-Public Use
  Company Number: NVSC2020CZ044529

PATIENT
  Age: 3 Month
  Sex: Male

DRUGS (8)
  1. FLUDARABINE PHOSPHATE. [Suspect]
     Active Substance: FLUDARABINE PHOSPHATE
     Indication: IMMUNODEFICIENCY
     Dosage: FROM DAYS 6 TO 3
     Route: 065
  2. ALEMTUZUMAB [Suspect]
     Active Substance: ALEMTUZUMAB
     Indication: IMMUNODEFICIENCY
     Dosage: FROM DAYS 8 TO 6
     Route: 065
  3. GANCICLOVIR. [Suspect]
     Active Substance: GANCICLOVIR
     Dosage: AT THE AGE OF 3 MONTHS
     Route: 065
  4. CYCLOSPORINE. [Suspect]
     Active Substance: CYCLOSPORINE
     Indication: PROPHYLAXIS AGAINST TRANSPLANT REJECTION
     Dosage: UNK
     Route: 065
  5. GANCICLOVIR. [Suspect]
     Active Substance: GANCICLOVIR
     Indication: CYTOMEGALOVIRUS INFECTION
     Dosage: AT THE AGE OF 26 MONTHS
     Route: 065
  6. BUSULFAN. [Suspect]
     Active Substance: BUSULFAN
     Indication: IMMUNODEFICIENCY
     Dosage: 500-700 NG/ML FROM DAYS 5 TO 2
     Route: 065
  7. BUSULFAN. [Suspect]
     Active Substance: BUSULFAN
     Indication: AUTOLOGOUS HAEMATOPOIETIC STEM CELL TRANSPLANT
  8. MYCOPHENOLATE MOFETIL. [Suspect]
     Active Substance: MYCOPHENOLATE MOFETIL
     Indication: PROPHYLAXIS AGAINST TRANSPLANT REJECTION
     Dosage: UNK
     Route: 065

REACTIONS (16)
  - Cytomegalovirus infection [Fatal]
  - Scrotal abscess [Fatal]
  - Failure to thrive [Fatal]
  - Mucosal inflammation [Fatal]
  - Sepsis [Fatal]
  - Vomiting [Fatal]
  - Upper respiratory tract infection [Fatal]
  - Multiple organ dysfunction syndrome [Fatal]
  - Febrile neutropenia [Fatal]
  - Product use issue [Fatal]
  - Malnutrition [Fatal]
  - Abdominal pain [Fatal]
  - Off label use [Fatal]
  - Neutropenia [Fatal]
  - Dysphagia [Fatal]
  - Septic shock [Fatal]
